FAERS Safety Report 18804722 (Version 2)
Quarter: 2021Q3

REPORT INFORMATION
  Report Type: Spontaneous
  Country: US (occurrence: US)
  Receive Date: 20210128
  Receipt Date: 20210706
  Transmission Date: 20211014
  Serious: Yes (Life-Threatening, Hospitalization)
  Sender: FDA-Public Use
  Company Number: US-TEVA-2021-US-1872199

PATIENT
  Age: 24 Year
  Sex: Female

DRUGS (1)
  1. VALPROIC ACID. [Suspect]
     Active Substance: VALPROIC ACID
     Indication: SEIZURE
     Route: 048

REACTIONS (10)
  - Toxicity to various agents [Recovering/Resolving]
  - Agitation [Recovering/Resolving]
  - Hypernatraemia [Recovering/Resolving]
  - Hypocalcaemia [Recovering/Resolving]
  - Encephalopathy [Recovering/Resolving]
  - Metabolic acidosis [Recovering/Resolving]
  - Overdose [Unknown]
  - Hyperammonaemia [Recovering/Resolving]
  - Osmolar gap increased [Recovering/Resolving]
  - Speech disorder [Recovering/Resolving]
